FAERS Safety Report 9969381 (Version 8)
Quarter: 2015Q1

REPORT INFORMATION
  Report Type: Report from Study
  Country: MY (occurrence: MY)
  Receive Date: 20140306
  Receipt Date: 20150320
  Transmission Date: 20150721
  Serious: Yes (Hospitalization)
  Sender: FDA-Public Use
  Company Number: MY-ROCHE-1282313

PATIENT
  Age: 59 Year
  Sex: Male
  Weight: 50 kg

DRUGS (27)
  1. METFORMIN [Concomitant]
     Active Substance: METFORMIN HYDROCHLORIDE
     Indication: DIABETES MELLITUS
     Route: 048
     Dates: start: 1993, end: 20140421
  2. EMEND [Concomitant]
     Active Substance: APREPITANT
     Route: 048
     Dates: start: 20130903, end: 20130904
  3. TRASTUZUMAB [Suspect]
     Active Substance: TRASTUZUMAB
     Indication: HER-2 POSITIVE GASTRIC CANCER
     Dosage: INITIAL DOSE OF 8 MG/KG IV FOLLOWED BY 6 MG/KG IV EVERY 3 WEEKS
     Route: 042
     Dates: start: 20130902, end: 20130902
  4. CAPECITABINE. [Suspect]
     Active Substance: CAPECITABINE
     Indication: HER-2 POSITIVE GASTRIC CANCER
     Dosage: BID
     Route: 048
     Dates: start: 20130903, end: 20130907
  5. MAXOLON [Concomitant]
     Active Substance: METOCLOPRAMIDE HYDROCHLORIDE
     Indication: FLATULENCE
     Route: 042
     Dates: start: 20140228, end: 20140302
  6. CEFUROXIME. [Concomitant]
     Active Substance: CEFUROXIME
     Indication: PYODERMA
  7. CEFUROXIME. [Concomitant]
     Active Substance: CEFUROXIME
     Indication: IMPETIGO
  8. EMEND [Concomitant]
     Active Substance: APREPITANT
     Indication: VOMITING
     Route: 048
     Dates: start: 20130902, end: 20130902
  9. TRASTUZUMAB [Suspect]
     Active Substance: TRASTUZUMAB
     Dosage: LAST DOSE PRIOR TO SERIOUS ADVERSE EVENT: 11/FEB/2014
     Route: 042
  10. ALPRAZOLAM. [Concomitant]
     Active Substance: ALPRAZOLAM
     Indication: INSOMNIA
     Dosage: SELECT IF ONGOING=NO
     Route: 048
     Dates: start: 20140211, end: 20140221
  11. MAXOLON [Concomitant]
     Active Substance: METOCLOPRAMIDE HYDROCHLORIDE
     Indication: DYSPEPSIA
     Route: 048
     Dates: start: 20130903, end: 20130905
  12. MAXOLON [Concomitant]
     Active Substance: METOCLOPRAMIDE HYDROCHLORIDE
     Indication: VOMITING
  13. DEXAMETHASONE. [Concomitant]
     Active Substance: DEXAMETHASONE
     Route: 048
     Dates: start: 20130903, end: 20130905
  14. MAXOLON [Concomitant]
     Active Substance: METOCLOPRAMIDE HYDROCHLORIDE
     Indication: NAUSEA
  15. CEFUROXIME. [Concomitant]
     Active Substance: CEFUROXIME
     Indication: FURUNCLE
     Dosage: FOR SKIN AND SOFT TISSUE INFECTION EG
     Route: 048
     Dates: start: 20130927, end: 20131003
  16. PERTUZUMAB [Suspect]
     Active Substance: PERTUZUMAB
     Indication: HER-2 POSITIVE GASTRIC CANCER
     Route: 042
     Dates: start: 20130902, end: 20140211
  17. ISOPHANE INSULIN [Concomitant]
     Active Substance: INSULIN NOS
     Indication: DIABETES MELLITUS
     Dosage: DOSE UNIT=U
     Route: 058
     Dates: start: 2009
  18. GRISEOFULVIN. [Concomitant]
     Active Substance: GRISEOFULVIN
     Dosage: INDICATION: ANTIFUNGAL
     Route: 048
     Dates: start: 20130927
  19. LORATADINE. [Concomitant]
     Active Substance: LORATADINE
     Indication: NASAL DISCOMFORT
  20. SIMVASTATIN. [Concomitant]
     Active Substance: SIMVASTATIN
     Indication: HYPERCHOLESTEROLAEMIA
     Route: 065
     Dates: start: 2009, end: 20140421
  21. MAXOLON [Concomitant]
     Active Substance: METOCLOPRAMIDE HYDROCHLORIDE
     Indication: GASTROOESOPHAGEAL REFLUX DISEASE
     Route: 048
     Dates: start: 20140211, end: 20140221
  22. PARACETAMOL [Concomitant]
     Active Substance: ACETAMINOPHEN
     Dosage: INDICATION PAIN CONTROLLER
     Route: 048
     Dates: start: 20140212, end: 20140221
  23. CAPECITABINE. [Suspect]
     Active Substance: CAPECITABINE
     Route: 048
     Dates: end: 20130916
  24. GLICLAZIDE [Concomitant]
     Active Substance: GLICLAZIDE
     Indication: DIABETES MELLITUS
     Route: 048
     Dates: start: 1998
  25. LORAZEPAM. [Concomitant]
     Active Substance: LORAZEPAM
     Indication: INSOMNIA
     Dosage: SELECT IF ONGOING=NO DOSE UNIT=G
     Route: 048
     Dates: start: 20140223, end: 20140224
  26. LORATADINE. [Concomitant]
     Active Substance: LORATADINE
     Indication: RHINORRHOEA
     Dosage: FOR RELIEF OF SYMPTOMS ASSOCIATED WITH ALLERGIC RHINITIS EG SNEEZING
     Route: 048
     Dates: start: 20130927, end: 20131003
  27. CISPLATIN. [Suspect]
     Active Substance: CISPLATIN
     Indication: HER-2 POSITIVE GASTRIC CANCER
     Dosage: Q3S
     Route: 042
     Dates: start: 20130902, end: 20130902

REACTIONS (3)
  - Diarrhoea [Recovered/Resolved]
  - Dehydration [Not Recovered/Not Resolved]
  - Diarrhoea [Recovered/Resolved]

NARRATIVE: CASE EVENT DATE: 20130907
